FAERS Safety Report 7183244-8 (Version None)
Quarter: 2010Q4

REPORT INFORMATION
  Report Type: 
  Country: None (occurrence: None)
  Receive Date: 20101222
  Receipt Date: 20100414
  Transmission Date: 20110411
  Serious: No
  Sender: FDA-Public Use
  Company Number: A0855276A

PATIENT

DRUGS (1)
  1. FLOVENT [Suspect]
     Route: 065

REACTIONS (1)
  - TOOTH EROSION [None]
